FAERS Safety Report 6356755-2 (Version None)
Quarter: 2009Q3

REPORT INFORMATION
  Report Type: 
  Country: None (occurrence: None)
  Receive Date: 20090915
  Receipt Date: 20090909
  Transmission Date: 20100115
  Serious: Yes (Life-Threatening)
  Sender: FDA-Public Use
  Company Number: BW-BRISTOL-MYERS SQUIBB COMPANY-14778351

PATIENT
  Age: 42 Year
  Sex: Male

DRUGS (4)
  1. EFAVIRENZ CAPS 600 MG [Suspect]
     Indication: HIV INFECTION
     Dosage: INTERRUPTED ON  07SEP2009, 85 DAYS
     Route: 048
     Dates: start: 20090615
  2. TRUVADA [Suspect]
     Indication: HIV INFECTION
     Dosage: INTERRUPTED ON 07SEP09, 85 DAYS; 1DF- 200/300 MG/D
     Route: 048
     Dates: start: 20090615
  3. SULFAMETHOXAZOLE AND TRIMETHOPRIM [Suspect]
     Indication: TUBERCULOSIS
     Dates: start: 20090408, end: 20090907
  4. PYRIDOXINE [Concomitant]
     Indication: TUBERCULOSIS
     Dates: start: 20090408, end: 20090907

REACTIONS (1)
  - HEPATOTOXICITY [None]
